FAERS Safety Report 5125759-X (Version None)
Quarter: 2006Q4

REPORT INFORMATION
  Report Type: 
  Country: None (occurrence: None)
  Receive Date: 20061012
  Receipt Date: 20060810
  Transmission Date: 20070319
  Serious: Yes (Life-Threatening, Hospitalization)
  Sender: FDA-Public Use
  Company Number: DE-AVENTIS-200612395DE

PATIENT
  Age: 53 Year
  Sex: Female
  Weight: 61 kg

DRUGS (9)
  1. CLEXANE [Suspect]
     Dosage: DOSE: 60-0-60
     Route: 058
     Dates: start: 20060701, end: 20060711
  2. CLEXANE [Suspect]
     Dosage: DOSE: 60-0-60
     Route: 058
     Dates: start: 20060713, end: 20060701
  3. CLEXANE [Suspect]
     Indication: AORTIC VALVE REPLACEMENT
     Dosage: DOSE: 60-0-60
     Route: 058
     Dates: start: 20060701, end: 20060711
  4. CLEXANE [Suspect]
     Dosage: DOSE: 60-0-60
     Route: 058
     Dates: start: 20060713, end: 20060701
  5. MARCUMAR [Suspect]
     Route: 048
     Dates: end: 20060630
  6. MARCUMAR [Suspect]
     Route: 048
     Dates: start: 20060712, end: 20060712
  7. MARCUMAR [Suspect]
     Dates: start: 20060701
  8. CLINDAMYCIN [Concomitant]
     Route: 042
     Dates: start: 20060711, end: 20060711
  9. CLINDAMYCIN HCL [Concomitant]
     Indication: PROPHYLAXIS
     Route: 048
     Dates: start: 20060715, end: 20060718

REACTIONS (4)
  - ACTIVATED PARTIAL THROMBOPLASTIN TIME PROLONGED [None]
  - COAGULATION TEST ABNORMAL [None]
  - HAEMORRHAGE [None]
  - PROTHROMBIN TIME PROLONGED [None]
